FAERS Safety Report 4330046-3 (Version None)
Quarter: 2004Q1

REPORT INFORMATION
  Report Type: 
  Country: None (occurrence: None)
  Receive Date: 20040329
  Receipt Date: 20040203
  Transmission Date: 20041129
  Serious: No
  Sender: FDA-Public Use
  Company Number: 03P-163-0235829-00

PATIENT
  Age: 52 Year
  Sex: Female

DRUGS (8)
  1. HUMIRA [Suspect]
     Indication: RHEUMATOID ARTHRITIS
     Dosage: 40 MG, 1 IN 2 WK; SUBCUANEOUS
     Route: 058
     Dates: start: 20030701, end: 20031010
  2. BUCINDOLOL HYDROCHLORIDE [Concomitant]
  3. CYCLOBENZAPRINE HCL [Concomitant]
  4. LEFLUNOMIDE [Concomitant]
  5. AZATHIOPRINE [Concomitant]
  6. PANTOPRAZOLE [Concomitant]
  7. METOPROLOL [Concomitant]
  8. ALENDRONATE SODIUM [Concomitant]

REACTIONS (3)
  - DERMATITIS ALLERGIC [None]
  - FATIGUE [None]
  - RASH VESICULAR [None]
